FAERS Safety Report 24968583 (Version 1)
Quarter: 2025Q1

REPORT INFORMATION
  Report Type: Spontaneous
  Country: NL (occurrence: NL)
  Receive Date: 20250214
  Receipt Date: 20250214
  Transmission Date: 20250409
  Serious: Yes (Hospitalization)
  Sender: PHARMACOSMOS A/S
  Company Number: None

PATIENT
  Age: 39 Year
  Sex: Female
  Weight: 121 kg

DRUGS (2)
  1. CABERGOLINE [Suspect]
     Active Substance: CABERGOLINE
     Indication: Lactation inhibition therapy
     Dates: start: 20250122, end: 20250122
  2. IRON ISOMALTOSIDE 1000 [Suspect]
     Active Substance: IRON ISOMALTOSIDE 1000
     Indication: Anaemia
     Dates: start: 20250124, end: 20250124

REACTIONS (2)
  - Periorbital oedema [Unknown]
  - Brief psychotic disorder, with postpartum onset [Recovering/Resolving]

NARRATIVE: CASE EVENT DATE: 20250124
